FAERS Safety Report 6334869-0 (Version None)
Quarter: 2009Q3

REPORT INFORMATION
  Report Type: 
  Country: None (occurrence: None)
  Receive Date: 20090831
  Receipt Date: 20090826
  Transmission Date: 20100115
  Serious: Yes (Death)
  Sender: FDA-Public Use
  Company Number: US-AVENTIS-200919443GDDC

PATIENT
  Age: 76 Year
  Sex: Male
  Weight: 88.2 kg

DRUGS (4)
  1. TAXOTERE [Suspect]
     Dosage: DOSE: 447 MG AS TOTAL DOSE THIS COURSE
     Route: 042
     Dates: start: 20090630, end: 20090810
  2. PREDNISONE TAB [Suspect]
     Dosage: DOSE: 53 MG AS TOTAL DOSE THIS COURSE
     Route: 048
     Dates: start: 20090630, end: 20090821
  3. CODE UNBROKEN [Suspect]
     Dosage: DOSE: 53 MG AS TOTAL DOSE THIS COURSE
     Route: 048
     Dates: start: 20090630, end: 20090821
  4. DEXAMETHASONE [Suspect]
     Dosage: DOSE: 60 MG AS TOTAL DOSE THIS COURSE
     Route: 048
     Dates: start: 20090630, end: 20090810

REACTIONS (1)
  - SUDDEN DEATH [None]
